FAERS Safety Report 6534518-2 (Version None)
Quarter: 2010Q1

REPORT INFORMATION
  Report Type: 
  Country: None (occurrence: None)
  Receive Date: 20100112
  Receipt Date: 20091231
  Transmission Date: 20100710
  Serious: Yes (Other)
  Sender: FDA-Public Use
  Company Number: GB-PFIZER INC-2009316260

PATIENT
  Age: 62 Year
  Sex: Male

DRUGS (12)
  1. BETAMETHASONE BENZOATE [Suspect]
     Indication: POSTOPERATIVE CARE
     Dosage: UNK
     Route: 047
     Dates: start: 20070402, end: 20070402
  2. SODIUM HYALURONATE [Suspect]
     Dosage: UNK
     Route: 047
     Dates: start: 20070402, end: 20070402
  3. LIDOCAINE 2% [Suspect]
     Indication: ANAESTHESIA
     Dosage: 2 ML, UNK
     Route: 047
     Dates: start: 20070402, end: 20070402
  4. LIDOCAINE 2% [Suspect]
     Indication: ANALGESIC THERAPY
  5. NEOMYCIN SULFATE [Suspect]
     Indication: POSTOPERATIVE CARE
     Dosage: UNK
     Dates: start: 20070402, end: 20070402
  6. POVIDONE-IODINE [Suspect]
     Indication: CATARACT OPERATION
     Dosage: UNK
     Route: 047
     Dates: start: 20070402, end: 20070420
  7. CYCLOPENTOLATE [Suspect]
     Indication: POSTOPERATIVE CARE
     Dosage: 1 %, UNK
     Route: 047
     Dates: start: 20070402, end: 20070402
  8. ADRENALINE [Suspect]
     Indication: EYE IRRIGATION
     Dosage: 0.3 ML, UNK
     Route: 047
     Dates: start: 20070402, end: 20070402
  9. OCUFEN [Suspect]
     Indication: POSTOPERATIVE CARE
     Dosage: UNK
     Route: 047
     Dates: start: 20070402, end: 20070402
  10. PHENYLEPHRINE [Suspect]
     Indication: PREOPERATIVE CARE
     Dosage: 2.5 %, UNK
     Route: 047
     Dates: start: 20070402, end: 20070402
  11. PROXYMETACAINE [Suspect]
     Indication: ANALGESIC THERAPY
     Dosage: UNK
     Route: 047
     Dates: start: 20070402, end: 20070402
  12. VANCOMYCIN [Suspect]
     Indication: EYE IRRIGATION
     Dosage: 10 MG, UNK
     Route: 047
     Dates: start: 20070402, end: 20070402

REACTIONS (1)
  - TOXIC ANTERIOR SEGMENT SYNDROME [None]
